FAERS Safety Report 16613702 (Version 1)
Quarter: 2019Q3

REPORT INFORMATION
  Report Type: Other
  Country: ES (occurrence: ES)
  Receive Date: 20190723
  Receipt Date: 20190723
  Transmission Date: 20191004
  Serious: Yes (Other)
  Sender: FDA-Public Use
  Company Number: ES-CELLTRION INC.-2019ES022906

PATIENT

DRUGS (2)
  1. TRUXIMA [Suspect]
     Active Substance: RITUXIMAB-ABBS
     Indication: DERMATOMYOSITIS
     Dosage: 1 G, EVERY 24 WEEKS
     Route: 042
     Dates: start: 20170809, end: 20170828
  2. TRUXIMA [Suspect]
     Active Substance: RITUXIMAB-ABBS
     Indication: POLYMYOSITIS

REACTIONS (2)
  - Gastroenteritis [Recovered/Resolved]
  - Product use in unapproved indication [Unknown]

NARRATIVE: CASE EVENT DATE: 20171228
